FAERS Safety Report 5779673-7 (Version None)
Quarter: 2008Q2

REPORT INFORMATION
  Report Type: 
  Country: None (occurrence: None)
  Receive Date: 20080617
  Receipt Date: 20080603
  Transmission Date: 20081010
  Serious: Yes (Hospitalization)
  Sender: FDA-Public Use
  Company Number: 2008-01303

PATIENT
  Age: 60 Year
  Sex: Female
  Weight: 76 kg

DRUGS (3)
  1. VELCADE [Suspect]
     Indication: MULTIPLE MYELOMA
     Dosage: 2.3 MG, INTRAVENOUS
     Route: 042
     Dates: start: 20080107, end: 20080207
  2. THALIDOMIDE [Suspect]
     Indication: MULTIPLE MYELOMA
     Dosage: 50 MG, ORAL
     Route: 048
     Dates: start: 20080107, end: 20080201
  3. DEXAMETHASONE TAB [Suspect]
     Indication: MULTIPLE MYELOMA

REACTIONS (5)
  - DRY SKIN [None]
  - DYSPHAGIA [None]
  - HEPATIC ENZYME INCREASED [None]
  - HYPERBILIRUBINAEMIA [None]
  - OESOPHAGITIS [None]
